FAERS Safety Report 17620414 (Version 6)
Quarter: 2020Q4

REPORT INFORMATION
  Report Type: Report from Study
  Country: CN (occurrence: CN)
  Receive Date: 20200403
  Receipt Date: 20201002
  Transmission Date: 20210113
  Serious: Yes (Hospitalization)
  Sender: FDA-Public Use
  Company Number: CN-ROCHE-2563632

PATIENT
  Age: 75 Year
  Sex: Female
  Weight: 69 kg

DRUGS (36)
  1. CALCIUM CARBONATE/VITAMIN D3 [Concomitant]
     Active Substance: CALCIUM CARBONATE\CHOLECALCIFEROL
     Dates: start: 20190329
  2. POTASSIUM CHLORIDE. [Concomitant]
     Active Substance: POTASSIUM CHLORIDE
     Indication: PROPHYLAXIS
     Dates: start: 20191113, end: 20191113
  3. BAICALIN;BUFFALO HORN;CHOLIC ACID;CONCHA MARGARITIFERA;GARDENIA JASMIN [Concomitant]
     Indication: NASAL CONGESTION
     Dates: start: 20191221, end: 20191226
  4. LEUCOGEN [Concomitant]
     Active Substance: LEUCOGEN
     Indication: THROMBOCYTOPENIA
     Dates: start: 20190510
  5. REDUCED GLUTATHIONE SODIUM [Concomitant]
     Active Substance: GLUTATHIONE
     Dates: start: 20191204, end: 20191204
  6. REDUCED GLUTATHIONE SODIUM [Concomitant]
     Active Substance: GLUTATHIONE
     Dates: start: 20200204, end: 20200204
  7. LEVOTHYROXINE SODIUM. [Concomitant]
     Active Substance: LEVOTHYROXINE SODIUM
     Indication: HYPOTHYROIDISM
     Dates: start: 20191001
  8. EJIAO [Concomitant]
     Indication: LEUKOPENIA
     Dates: start: 20190308
  9. BEVACIZUMAB. [Suspect]
     Active Substance: BEVACIZUMAB
     Indication: OVARIAN CANCER
     Dosage: ON 04/FEB/2020, THE PATIENT RECEIVED DOSE 990 MG PRIOR TO SAE.
     Route: 042
     Dates: start: 20181211
  10. POTASSIUM CHLORIDE. [Concomitant]
     Active Substance: POTASSIUM CHLORIDE
     Dates: start: 20200115, end: 20200115
  11. LEVAMLODIPINE MALEATE. [Concomitant]
     Active Substance: LEVAMLODIPINE MALEATE
     Dates: start: 2008
  12. JUJUBE [Concomitant]
     Indication: LEUKOPENIA
     Dates: start: 20190308
  13. REDUCED GLUTATHIONE SODIUM [Concomitant]
     Active Substance: GLUTATHIONE
     Dates: start: 20200115, end: 20200115
  14. LANSOPRAZOLE. [Concomitant]
     Active Substance: LANSOPRAZOLE
     Dates: start: 20191225, end: 20191225
  15. POTASSIUM CHLORIDE. [Concomitant]
     Active Substance: POTASSIUM CHLORIDE
     Dates: start: 20200204, end: 20200204
  16. PLACEBO [Suspect]
     Active Substance: UNSPECIFIED INGREDIENT
     Indication: OVARIAN CANCER
     Dosage: ON 04/FEB/2020, THE PATIENT RECEIVED DOSE OF ATEZOLIZUMAB MG PRIOR TO SAE.
     Route: 042
     Dates: start: 20181120
  17. PACLITAXEL. [Suspect]
     Active Substance: PACLITAXEL
     Indication: OVARIAN CANCER
     Dosage: ON 06/MAR/2019, THE PATIENT RECEIVED MOST RECENT DOSE 300 MG PRIOR TO EVENT.
     Route: 042
     Dates: start: 20181120
  18. RADIX SOPHORAE FLAVESCENTIS [Concomitant]
     Indication: LEUKOPENIA
     Dates: start: 20190308
  19. ANGELICA [Concomitant]
     Indication: LEUKOPENIA
     Dates: start: 20190308
  20. RADIX ISATIDIS [Concomitant]
     Dates: start: 20190718
  21. MUNG BEAN. [Concomitant]
     Active Substance: MUNG BEAN
     Dates: start: 20190718
  22. REDUCED GLUTATHIONE SODIUM [Concomitant]
     Active Substance: GLUTATHIONE
     Indication: PROPHYLAXIS
     Dates: start: 20191113, end: 20191113
  23. LANSOPRAZOLE. [Concomitant]
     Active Substance: LANSOPRAZOLE
     Indication: PROPHYLAXIS
     Dates: start: 20191113, end: 20191113
  24. LANSOPRAZOLE. [Concomitant]
     Active Substance: LANSOPRAZOLE
     Dates: start: 20191204, end: 20191204
  25. POTASSIUM CHLORIDE. [Concomitant]
     Active Substance: POTASSIUM CHLORIDE
     Dates: start: 20191204, end: 20191204
  26. POTASSIUM CHLORIDE. [Concomitant]
     Active Substance: POTASSIUM CHLORIDE
     Dates: start: 20191225, end: 20191225
  27. OMEPRAZOLE SODIUM [Concomitant]
     Active Substance: OMEPRAZOLE SODIUM
     Dates: start: 20200204, end: 20200204
  28. CARBOPLATIN. [Suspect]
     Active Substance: CARBOPLATIN
     Indication: OVARIAN CANCER
     Dosage: ON 06/MAR/2019, THE PATIENT RECEIVED MOST RECENT DOSE 590 MG PRIOR TO EVENT. ?DOSE TO ACHIEVE A TARG
     Route: 042
     Dates: start: 20181120
  29. FOLIUM GINKGO [Concomitant]
     Dates: start: 2008
  30. BLOOD GINSENG [Concomitant]
     Indication: LEUKOPENIA
     Dates: start: 20190308
  31. ASTRAGALUS [Concomitant]
     Indication: LEUKOPENIA
     Dates: start: 20190308
  32. RADIX BUPLEURI [Concomitant]
     Active Substance: HERBALS
     Dates: start: 20190718
  33. BERBERINE HYDROCHLORIDE [Concomitant]
     Active Substance: BERBERINE
     Indication: DIARRHOEA
     Dates: start: 20190803, end: 20200205
  34. REDUCED GLUTATHIONE SODIUM [Concomitant]
     Active Substance: GLUTATHIONE
     Dates: start: 20191225, end: 20191225
  35. AMIFOSTINE. [Concomitant]
     Active Substance: AMIFOSTINE
     Indication: PROPHYLAXIS
     Dates: start: 20191113, end: 20191113
  36. OMEPRAZOLE SODIUM [Concomitant]
     Active Substance: OMEPRAZOLE SODIUM
     Indication: PROPHYLAXIS
     Dates: start: 20200115, end: 20200115

REACTIONS (1)
  - Immune-mediated nephritis [Recovered/Resolved]

NARRATIVE: CASE EVENT DATE: 20191203
